FAERS Safety Report 23779881 (Version 2)
Quarter: 2024Q2

REPORT INFORMATION
  Report Type: Report from Study
  Country: AT (occurrence: AT)
  Receive Date: 20240424
  Receipt Date: 20240502
  Transmission Date: 20240715
  Serious: Yes (Other)
  Sender: FDA-Public Use
  Company Number: AT-PFM-2024-00160

PATIENT
  Age: 62 Year
  Sex: Male

DRUGS (25)
  1. ENCORAFENIB [Suspect]
     Active Substance: ENCORAFENIB
     Indication: Malignant melanoma
     Dosage: 450 MG, QD (1/DAY)
     Route: 048
     Dates: start: 20190711, end: 20220826
  2. ENCORAFENIB [Suspect]
     Active Substance: ENCORAFENIB
     Dosage: 450 MG
     Route: 065
     Dates: start: 20220905, end: 20230907
  3. BINIMETINIB [Suspect]
     Active Substance: BINIMETINIB
     Indication: Malignant melanoma
     Dosage: 45 MG, BID (2/DAY)
     Route: 048
     Dates: start: 20190711, end: 20220826
  4. BINIMETINIB [Suspect]
     Active Substance: BINIMETINIB
     Dosage: UNK
     Route: 065
     Dates: start: 20220905, end: 20230907
  5. CHOLECALCIFEROL [Concomitant]
     Active Substance: CHOLECALCIFEROL
     Indication: Prophylaxis
     Dosage: UNK (DROPS )
     Route: 065
  6. BISOPROLOL FUMARATE [Concomitant]
     Active Substance: BISOPROLOL FUMARATE
     Dosage: UNK
     Route: 065
  7. SERTRALINE HYDROCHLORIDE [Concomitant]
     Active Substance: SERTRALINE HYDROCHLORIDE
     Dosage: UNK
     Route: 065
     Dates: start: 20180831, end: 20200205
  8. ISOCONAZOLE NITRATE [Concomitant]
     Active Substance: ISOCONAZOLE NITRATE
     Indication: Eczema
     Dosage: UNK
     Route: 065
     Dates: start: 20210114, end: 20210119
  9. SPIKEVAX [Concomitant]
     Dosage: UNK ((COVID-19 VACCINE MODERNA))
     Route: 065
     Dates: start: 20210325
  10. SPIKEVAX [Concomitant]
     Dosage: UNK
     Route: 065
     Dates: start: 20210422
  11. SPIKEVAX [Concomitant]
     Dosage: UNK
     Route: 065
     Dates: start: 20211022
  12. AMOROLFINE HYDROCHLORIDE [Concomitant]
     Active Substance: AMOROLFINE HYDROCHLORIDE
     Indication: Nail dystrophy
     Dosage: UNK (NAIL LACQUER)
     Route: 065
     Dates: start: 20210827, end: 20211215
  13. MICETAL [Concomitant]
     Indication: Nail dystrophy
     Dosage: UNK
     Route: 065
     Dates: start: 20210827, end: 20211215
  14. ADVANTAN MILK [Concomitant]
     Indication: Subacute cutaneous lupus erythematosus
     Dosage: UNK
     Route: 065
     Dates: start: 20220310, end: 20220510
  15. ADVANTAN MILK [Concomitant]
     Dosage: UNK
     Route: 065
     Dates: start: 20220629, end: 20220705
  16. DUCRAY KELUAL DS [Concomitant]
     Indication: Subcutaneous abscess
     Dosage: UNK
     Route: 065
     Dates: start: 20220504, end: 20220531
  17. METHYLPREDNISOLONE ACEPONATE [Concomitant]
     Active Substance: METHYLPREDNISOLONE ACEPONATE
     Indication: Subcutaneous abscess
     Dosage: UNK (DERMATOLOGIST) (DOSAGE FORM:SOLUTION)
     Route: 065
     Dates: start: 20220601, end: 20220615
  18. DIPRODERM [BETAMETHASONE DIPROPIONATE] [Concomitant]
     Indication: Subacute cutaneous lupus erythematosus
     Dosage: UNK
     Route: 065
     Dates: start: 20220905, end: 20230412
  19. DIPRODERM [BETAMETHASONE DIPROPIONATE] [Concomitant]
     Dosage: UNK
     Route: 065
     Dates: start: 20230607, end: 20230814
  20. PREDNISOLONE [Concomitant]
     Active Substance: PREDNISOLONE
     Indication: Subacute cutaneous lupus erythematosus
     Dosage: UNK
     Route: 065
     Dates: start: 20220905, end: 20230412
  21. DEXERYL [CHLORPHENAMINE MALEATE;DEXTROMETHORPHAN HYDROBROMIDE;GUAIFENE [Concomitant]
     Indication: Subacute cutaneous lupus erythematosus
     Dosage: UNK (CREME)
     Route: 065
     Dates: start: 20230705
  22. COMIRNATY (TOZINAMERAN) [Concomitant]
     Active Substance: TOZINAMERAN
     Dosage: UNK ((BIONTECH/PFIZER))
     Route: 065
     Dates: start: 20221005
  23. COMIRNATY (TOZINAMERAN) [Concomitant]
     Active Substance: TOZINAMERAN
     Dosage: UNK
     Route: 065
     Dates: start: 20231006
  24. FERRETAB [FERROUS FUMARATE] [Concomitant]
     Indication: Anaemia
     Dosage: UNK
     Route: 065
  25. FERINJECT [Concomitant]
     Active Substance: FERRIC CARBOXYMALTOSE
     Indication: Anaemia
     Dosage: UNK
     Route: 065
     Dates: start: 202308, end: 202308

REACTIONS (1)
  - Large intestinal ulcer [Recovered/Resolved]

NARRATIVE: CASE EVENT DATE: 20230406
